FAERS Safety Report 12399875 (Version 1)
Quarter: 2016Q2

REPORT INFORMATION
  Report Type: Spontaneous
  Country: US (occurrence: US)
  Receive Date: 20160524
  Receipt Date: 20160524
  Transmission Date: 20160815
  Serious: Yes (Death, Other)
  Sender: FDA-Public Use
  Company Number: PHHY2016US067860

PATIENT
  Age: 60 Year
  Sex: Female

DRUGS (7)
  1. OXALIPLATIN. [Suspect]
     Active Substance: OXALIPLATIN
     Indication: METASTASIS
     Dosage: TWO WEEKLY CYCLES
     Route: 065
     Dates: start: 201012
  2. IRINOTECAN [Suspect]
     Active Substance: IRINOTECAN
     Indication: METASTASIS
  3. LEUCOVORIN CALCIUM. [Suspect]
     Active Substance: LEUCOVORIN CALCIUM
     Indication: METASTASIS
     Dosage: TWO WEEKLY CYCLES
     Route: 042
     Dates: start: 201012
  4. CETUXIMAB [Suspect]
     Active Substance: CETUXIMAB
     Indication: METASTASIS
     Route: 065
  5. 5-FLUOROURACIL [Suspect]
     Active Substance: FLUOROURACIL
     Indication: METASTASIS
     Dosage: TWO WEEKLY CYCLES
     Route: 042
     Dates: start: 201012
  6. BEVACIZUMAB [Suspect]
     Active Substance: BEVACIZUMAB
     Indication: METASTASIS
     Dosage: TWO WEEKLY CYCLES
     Route: 042
     Dates: start: 201012
  7. RAMUCIRUMAB [Suspect]
     Active Substance: RAMUCIRUMAB
     Indication: METASTASIS
     Route: 065

REACTIONS (10)
  - Mental status changes [Unknown]
  - Hypersensitivity [Unknown]
  - Metastases to bone [Fatal]
  - Performance status decreased [Unknown]
  - Disease progression [Fatal]
  - Metastasis [Fatal]
  - Bone marrow failure [Unknown]
  - Drug effect incomplete [Unknown]
  - Metastases to central nervous system [Fatal]
  - Metastases to meninges [Fatal]
